FAERS Safety Report 13957457 (Version 1)
Quarter: 2017Q3

REPORT INFORMATION
  Report Type: Report from Study
  Country: None (occurrence: US)
  Receive Date: 20170912
  Receipt Date: 20170912
  Transmission Date: 20171128
  Serious: Yes (Hospitalization)
  Sender: FDA-Public Use
  Company Number: US-ABBVIE-17K-163-2094387-00

PATIENT
  Sex: Female

DRUGS (1)
  1. HUMIRA [Suspect]
     Active Substance: ADALIMUMAB
     Indication: RHEUMATOID ARTHRITIS
     Route: 058

REACTIONS (7)
  - Osteoporosis [Unknown]
  - Blood calcium increased [Unknown]
  - Hand deformity [Unknown]
  - Fall [Unknown]
  - Diaphragmatic paralysis [Unknown]
  - Injection site pain [Unknown]
  - Injection site rash [Unknown]
